FAERS Safety Report 9956402 (Version 2)
Quarter: 2014Q1

REPORT INFORMATION
  Report Type: Report from Study
  Country: PR (occurrence: PR)
  Receive Date: 20140304
  Receipt Date: 20140304
  Transmission Date: 20141002
  Serious: No
  Sender: FDA-Public Use
  Company Number: PR-ABBVIE-12P-131-0906028-00

PATIENT
  Sex: Male
  Weight: 86.26 kg

DRUGS (5)
  1. HUMIRA [Suspect]
     Indication: RHEUMATOID ARTHRITIS
     Route: 058
     Dates: start: 2009, end: 201105
  2. HYDROXYZINE [Concomitant]
     Indication: DERMATITIS ATOPIC
     Route: 048
  3. CELERIZINE [Concomitant]
     Indication: DERMATITIS ATOPIC
     Route: 048
  4. FLUOCINONIDE [Concomitant]
     Indication: DERMATITIS ATOPIC
     Route: 061
  5. TRIAMCINOLONE ACETONIDE [Concomitant]
     Indication: DERMATITIS ATOPIC
     Route: 061

REACTIONS (2)
  - Dermatitis atopic [Not Recovered/Not Resolved]
  - Rash generalised [Not Recovered/Not Resolved]
